FAERS Safety Report 25181184 (Version 3)
Quarter: 2025Q3

REPORT INFORMATION
  Report Type: Spontaneous
  Country: US (occurrence: US)
  Receive Date: 20250410
  Receipt Date: 20250729
  Transmission Date: 20251020
  Serious: Yes (Other)
  Sender: NOVO NORDISK
  Company Number: US-NOVOPROD-1403358

PATIENT
  Age: 39 Year
  Sex: Female

DRUGS (3)
  1. NOVOLOG MIX 70/30 [Suspect]
     Active Substance: INSULIN ASPART
     Indication: Type 1 diabetes mellitus
     Route: 058
     Dates: start: 201510
  2. NOVOLOG MIX 70/30 [Suspect]
     Active Substance: INSULIN ASPART
  3. NOVOLOG MIX 70/30 [Suspect]
     Active Substance: INSULIN ASPART
     Route: 058

REACTIONS (5)
  - Diabetic ketoacidosis [Recovering/Resolving]
  - Device failure [Unknown]
  - Device leakage [Unknown]
  - Liquid product physical issue [Unknown]
  - Device breakage [Unknown]

NARRATIVE: CASE EVENT DATE: 20250301
